FAERS Safety Report 6040199-7 (Version None)
Quarter: 2009Q1

REPORT INFORMATION
  Report Type: 
  Country: None (occurrence: None)
  Receive Date: 20090116
  Receipt Date: 20080111
  Transmission Date: 20090719
  Serious: No
  Sender: FDA-Public Use
  Company Number: US-BRISTOL-MYERS SQUIBB COMPANY-14037881

PATIENT
  Age: 48 Year
  Sex: Female
  Weight: 68 kg

DRUGS (4)
  1. ABILIFY [Suspect]
     Indication: BIPOLAR DISORDER
     Dosage: INITIAL DOSE 10MG,INCREASED TO 15MG AND THEN TO THERAPEUTIC 20MG
     Route: 048
  2. CYMBALTA [Concomitant]
  3. INDERAL [Concomitant]
  4. TRAZODONE HCL [Concomitant]

REACTIONS (2)
  - AKATHISIA [None]
  - ANXIETY [None]
